FAERS Safety Report 6559026-4 (Version None)
Quarter: 2010Q1

REPORT INFORMATION
  Report Type: 
  Country: None (occurrence: None)
  Receive Date: 20100129
  Receipt Date: 20100125
  Transmission Date: 20100710
  Serious: Yes (Hospitalization)
  Sender: FDA-Public Use
  Company Number: CA-ELI_LILLY_AND_COMPANY-CA200910003544

PATIENT
  Sex: Male
  Weight: 60.2 kg

DRUGS (2)
  1. SOMATROPIN [Suspect]
     Indication: GROWTH RETARDATION
     Dosage: 3 MG, SIX DAYS A WEEK
     Route: 058
     Dates: start: 20090116, end: 20091026
  2. CELEXA [Concomitant]
     Indication: OBSESSIVE-COMPULSIVE DISORDER
     Dosage: UNK, UNK
     Dates: start: 20081101

REACTIONS (3)
  - COLONIC POLYP [None]
  - RECTAL HAEMORRHAGE [None]
  - RECTAL PROLAPSE [None]
